FAERS Safety Report 4396415-0 (Version None)
Quarter: 2004Q3

REPORT INFORMATION
  Report Type: 
  Country: None (occurrence: None)
  Receive Date: 20040709
  Receipt Date: 20040701
  Transmission Date: 20050211
  Serious: Yes (Hospitalization, Other)
  Sender: FDA-Public Use
  Company Number: HQWYE842301JUL04

PATIENT
  Age: 62 Year
  Sex: Female

DRUGS (10)
  1. PANTOPRAZOLE SODIUM [Suspect]
     Indication: PROPHYLAXIS
     Dosage: 40 MG 1X PER 1 DAY; ORAL
     Route: 048
     Dates: start: 20021215, end: 20030127
  2. ESTRADIOL [Suspect]
     Dosage: INHALATION
     Route: 055
     Dates: start: 19990615, end: 20030127
  3. PILOSURYL (MOUSE-EAR HAWKWEED/PHYLLANTUS EMBLICA,) [Suspect]
     Dosage: ^1.5 DOSE FORM^; ORAL
     Route: 048
     Dates: start: 20021015, end: 20030127
  4. PROGESTERONE [Suspect]
     Indication: MENOPAUSE
     Dosage: 100 MG 1X PER 1 DAY; ORAL
     Route: 048
     Dates: start: 19990615, end: 20030127
  5. VIOXX [Suspect]
     Dosage: SEE IMAGE
     Route: 048
     Dates: start: 20020101, end: 20030102
  6. VIOXX [Suspect]
     Dosage: SEE IMAGE
     Route: 048
     Dates: start: 20030102, end: 20030112
  7. VIOXX [Suspect]
     Dosage: SEE IMAGE
     Route: 048
     Dates: start: 20030102, end: 20030112
  8. . [Concomitant]
  9. . [Concomitant]
  10. LORAZEPAM [Concomitant]

REACTIONS (4)
  - CHOLANGITIS [None]
  - CYTOLYTIC HEPATITIS [None]
  - GALLBLADDER PAIN [None]
  - SMOOTH MUSCLE ANTIBODY POSITIVE [None]
